FAERS Safety Report 19364815 (Version 1)
Quarter: 2021Q2

REPORT INFORMATION
  Report Type: Spontaneous
  Country: KR (occurrence: KR)
  Receive Date: 20210602
  Receipt Date: 20210602
  Transmission Date: 20210717
  Serious: Yes (Other)
  Sender: FDA-Public Use
  Company Number: KR-BAYER-2021-150039

PATIENT
  Age: 28 Year
  Sex: Female

DRUGS (1)
  1. YAZ [Suspect]
     Active Substance: DROSPIRENONE\ETHINYL ESTRADIOL
     Indication: POLYCYSTIC OVARIES
     Dosage: 1 DF, QD
     Route: 048
     Dates: start: 20210331, end: 20210524

REACTIONS (5)
  - Cough [Recovering/Resolving]
  - Loss of consciousness [Recovering/Resolving]
  - Off label use [None]
  - Pericarditis [None]
  - Vomiting [Recovering/Resolving]

NARRATIVE: CASE EVENT DATE: 20210331
